FAERS Safety Report 25194200 (Version 1)
Quarter: 2025Q2

REPORT INFORMATION
  Report Type: Report from Study
  Country: CA (occurrence: CA)
  Receive Date: 20250414
  Receipt Date: 20250414
  Transmission Date: 20250716
  Serious: Yes (Hospitalization)
  Sender: ABBVIE
  Company Number: CA-ABBVIE-6220029

PATIENT
  Age: 66 Year
  Sex: Male

DRUGS (2)
  1. SKYRIZI [Suspect]
     Active Substance: RISANKIZUMAB-RZAA
     Indication: Psoriasis
     Dosage: 150MG/M
     Route: 058
     Dates: start: 20210302
  2. OZEMPIC [Suspect]
     Active Substance: SEMAGLUTIDE
     Indication: Psoriasis
     Route: 065

REACTIONS (7)
  - Swollen tongue [Recovering/Resolving]
  - Hypersensitivity [Unknown]
  - Mouth swelling [Recovering/Resolving]
  - Eye haemorrhage [Recovering/Resolving]
  - Loss of consciousness [Recovering/Resolving]
  - Hypotension [Recovering/Resolving]
  - Asthenia [Unknown]

NARRATIVE: CASE EVENT DATE: 20250331
